FAERS Safety Report 16981027 (Version 2)
Quarter: 2019Q4

REPORT INFORMATION
  Report Type: Spontaneous
  Country: US (occurrence: US)
  Receive Date: 20191031
  Receipt Date: 20191101
  Transmission Date: 20200122
  Serious: Yes (Hospitalization, Other)
  Sender: FDA-Public Use
  Company Number: US-CELGENEUS-USA-20191009689

PATIENT
  Sex: Male
  Weight: 91 kg

DRUGS (2)
  1. REVLIMID [Suspect]
     Active Substance: LENALIDOMIDE
     Indication: PLASMA CELL MYELOMA
     Dosage: 25 MILLIGRAM
     Route: 048
     Dates: start: 201803
  2. REVLIMID [Suspect]
     Active Substance: LENALIDOMIDE
     Dosage: 10 MILLIGRAM
     Route: 048
     Dates: start: 201908

REACTIONS (11)
  - Lower limb fracture [Unknown]
  - Seizure [Unknown]
  - Diarrhoea [Unknown]
  - Pneumonia [Unknown]
  - Thrombosis [Unknown]
  - Renal impairment [Unknown]
  - Gouty arthritis [Unknown]
  - Sinusitis [Unknown]
  - Bone pain [Unknown]
  - Blood glucose decreased [Unknown]
  - Dehydration [Unknown]

NARRATIVE: CASE EVENT DATE: 2019
